FAERS Safety Report 6608287-1 (Version None)
Quarter: 2010Q1

REPORT INFORMATION
  Report Type: 
  Country: None (occurrence: None)
  Receive Date: 20100301
  Receipt Date: 20100224
  Transmission Date: 20100710
  Serious: Yes (Life-Threatening)
  Sender: FDA-Public Use
  Company Number: FR-JNJFOC-20100210430

PATIENT
  Age: 87 Year
  Sex: Male

DRUGS (4)
  1. TAVANIC [Suspect]
     Indication: BRONCHITIS
     Route: 048
  2. GARDENAL [Concomitant]
     Route: 065
  3. KARDEGIC [Concomitant]
     Route: 065
  4. TRIMETAZIDINE HYDROCHLORIDE [Concomitant]
     Route: 065

REACTIONS (5)
  - ACUTE RESPIRATORY FAILURE [None]
  - ANAPHYLACTIC REACTION [None]
  - BRONCHOSPASM [None]
  - ERYTHEMA [None]
  - RASH MACULO-PAPULAR [None]
